FAERS Safety Report 9985086 (Version 1)
Quarter: 2014Q1

REPORT INFORMATION
  Report Type: Report from Study
  Country: US (occurrence: US)
  Receive Date: 20140307
  Receipt Date: 20140307
  Transmission Date: 20141002
  Serious: No
  Sender: FDA-Public Use
  Company Number: US-ABBVIE-14P-163-1187788-00

PATIENT
  Age: 49 Year
  Sex: Female

DRUGS (8)
  1. HUMIRA [Suspect]
     Indication: CROHN^S DISEASE
     Dates: start: 20131118
  2. METHOTREXATE [Concomitant]
     Indication: CROHN^S DISEASE
     Dosage: EVERY SUNDAY
  3. FOLIC ACID [Concomitant]
     Indication: PRODUCT USED FOR UNKNOWN INDICATION
  4. MULTIVITAMIN [Concomitant]
     Indication: PRODUCT USED FOR UNKNOWN INDICATION
  5. CALCIUM [Concomitant]
     Indication: PRODUCT USED FOR UNKNOWN INDICATION
  6. VITAMIN D [Concomitant]
     Indication: VITAMIN SUPPLEMENTATION
  7. LOPERAMIDE [Concomitant]
     Indication: CROHN^S DISEASE
     Dosage: WITH EACH MEAL
  8. LEXAPRO [Concomitant]
     Indication: DEPRESSION

REACTIONS (1)
  - Injection site haemorrhage [Recovered/Resolved]
